FAERS Safety Report 9803752 (Version 1)
Quarter: 2014Q1

REPORT INFORMATION
  Report Type: Spontaneous
  Country: US (occurrence: US)
  Receive Date: 20140108
  Receipt Date: 20140108
  Transmission Date: 20141002
  Serious: No
  Sender: FDA-Public Use
  Company Number: US-GLAXOSMITHKLINE-A1032805A

PATIENT
  Age: 78 Year
  Sex: Female

DRUGS (11)
  1. LOVAZA [Suspect]
     Indication: BLOOD TRIGLYCERIDES INCREASED
     Route: 048
     Dates: start: 2009
  2. MULTIVITAMIN [Concomitant]
  3. GLYBURIDE [Concomitant]
  4. ATORVASTATIN [Concomitant]
  5. LEVEMIR [Concomitant]
  6. DILTIAZEM [Concomitant]
  7. METOPROLOL [Concomitant]
  8. CINNAMON [Concomitant]
  9. POTASSIUM [Concomitant]
  10. OMEPRAZOLE [Concomitant]
  11. COUMADIN [Concomitant]

REACTIONS (1)
  - Blood triglycerides increased [Not Recovered/Not Resolved]
